APPROVED DRUG PRODUCT: PHENYLBUTAZONE
Active Ingredient: PHENYLBUTAZONE
Strength: 100MG
Dosage Form/Route: CAPSULE;ORAL
Application: A087756 | Product #001
Applicant: WATSON LABORATORIES INC
Approved: Dec 17, 1982 | RLD: No | RS: No | Type: DISCN